FAERS Safety Report 25598120 (Version 1)
Quarter: 2025Q3

REPORT INFORMATION
  Report Type: Spontaneous
  Country: US (occurrence: US)
  Receive Date: 20250723
  Receipt Date: 20250723
  Transmission Date: 20251020
  Serious: No
  Sender: BAYER HEALTHCARE LLC
  Company Number: US-BAYER-2025A097371

PATIENT
  Sex: Male

DRUGS (2)
  1. CLARITIN [Suspect]
     Active Substance: LORATADINE
     Indication: Skin swelling
     Route: 065
  2. CLARITIN [Suspect]
     Active Substance: LORATADINE
     Indication: Hallucination, auditory

REACTIONS (1)
  - Product prescribing issue [Unknown]
